FAERS Safety Report 10214489 (Version 1)
Quarter: 2014Q2

REPORT INFORMATION
  Report Type: Spontaneous
  Country: US (occurrence: None)
  Receive Date: 20140602
  Receipt Date: 20140602
  Transmission Date: 20141212
  Serious: Yes (Life-Threatening, Hospitalization)
  Sender: FDA-Public Use
  Company Number: None

PATIENT
  Age: 81 Year
  Sex: Female
  Weight: 68.7 kg

DRUGS (8)
  1. SOTALOL [Suspect]
     Indication: ATRIAL FIBRILLATION
     Dosage: 1.5 TABLETS QD ORAL
     Route: 048
     Dates: start: 20140531, end: 20140601
  2. RIVAROXABAN [Concomitant]
  3. PANTOPRAZOLE [Concomitant]
  4. METOCLOPRAMIDE [Concomitant]
  5. MAGNESIUM SULFATE [Concomitant]
  6. LEVOTHYROXINE [Concomitant]
  7. IRON MAGNESIUM [Concomitant]
  8. POTASSIUM [Concomitant]

REACTIONS (1)
  - Torsade de pointes [None]
